FAERS Safety Report 9562498 (Version 1)
Quarter: 2013Q3

REPORT INFORMATION
  Report Type: Spontaneous
  Country: US (occurrence: US)
  Receive Date: 20130927
  Receipt Date: 20130927
  Transmission Date: 20140515
  Serious: Yes (Hospitalization, Disabling, Other)
  Sender: FDA-Public Use
  Company Number: US-SANOFI-AVENTIS-2013SA092710

PATIENT
  Sex: Female

DRUGS (5)
  1. LOVENOX [Suspect]
     Route: 065
  2. LOVENOX [Suspect]
     Route: 065
  3. COUMADIN [Suspect]
     Route: 065
  4. VITAMIN B12 [Concomitant]
     Route: 065
  5. FOLIC ACID [Concomitant]
     Route: 065

REACTIONS (13)
  - Urinary tract infection [Not Recovered/Not Resolved]
  - Lung adenocarcinoma [Not Recovered/Not Resolved]
  - Chest pain [Not Recovered/Not Resolved]
  - Adrenal mass [Not Recovered/Not Resolved]
  - Axillary mass [Not Recovered/Not Resolved]
  - Thrombosis [Not Recovered/Not Resolved]
  - Extradural haematoma [Not Recovered/Not Resolved]
  - Paralysis [Not Recovered/Not Resolved]
  - Blood glucose decreased [Not Recovered/Not Resolved]
  - Pyrexia [Not Recovered/Not Resolved]
  - Burning sensation [Not Recovered/Not Resolved]
  - Erythema [Not Recovered/Not Resolved]
  - Tremor [Not Recovered/Not Resolved]
